FAERS Safety Report 25618794 (Version 2)
Quarter: 2025Q3

REPORT INFORMATION
  Report Type: Report from Study
  Country: US (occurrence: US)
  Receive Date: 20250729
  Receipt Date: 20250821
  Transmission Date: 20251020
  Serious: No
  Sender: SUNOVION
  Company Number: US-SMPA-2025SPA009223AA

PATIENT
  Age: 75 Year
  Sex: Male

DRUGS (9)
  1. ORGOVYX [Suspect]
     Active Substance: RELUGOLIX
     Indication: Prostate cancer
     Route: 048
  2. ORGOVYX [Suspect]
     Active Substance: RELUGOLIX
     Route: 048
  3. ATORVASTATIN [Concomitant]
     Active Substance: ATORVASTATIN
  4. COENZYME Q10 [Concomitant]
     Active Substance: DIETARY SUPPLEMENT\UBIDECARENONE
  5. FISH OIL [Concomitant]
     Active Substance: FISH OIL
  6. FLOMAX [Concomitant]
     Active Substance: TAMSULOSIN HYDROCHLORIDE
  7. Glucosamine + chondroitin [Concomitant]
  8. VITAMINS [Concomitant]
     Active Substance: VITAMINS
  9. NUBEQA [Concomitant]
     Active Substance: DAROLUTAMIDE

REACTIONS (4)
  - Pollakiuria [Unknown]
  - Nocturia [Unknown]
  - Fatigue [Unknown]
  - Diarrhoea [Unknown]
